FAERS Safety Report 25578859 (Version 6)
Quarter: 2025Q4

REPORT INFORMATION
  Report Type: Report from Study
  Country: EU (occurrence: EU)
  Receive Date: 20250718
  Receipt Date: 20251121
  Transmission Date: 20260117
  Serious: Yes (Hospitalization)
  Sender: ABBVIE
  Company Number: EU-ABBVIE-6209495

PATIENT
  Age: 77 Year
  Sex: Male

DRUGS (8)
  1. FOSCARBIDOPA\FOSLEVODOPA [Suspect]
     Active Substance: FOSCARBIDOPA\FOSLEVODOPA
     Indication: Parkinson^s disease
     Dosage: (SD: 0.30 ML), CRN: 0.15 ML/H, CR: 0.20 ML/H, CRH: 0.20 ML/H, ED:0.15 ML, 16 HOURS
     Route: 058
     Dates: start: 20250331, end: 20250401
  2. FOSCARBIDOPA\FOSLEVODOPA [Suspect]
     Active Substance: FOSCARBIDOPA\FOSLEVODOPA
     Dosage: SD: 0.30 ML, CRN: 0.15 ML/H; CR: 0.20 ML/H; ED: 0.15 ML?LAST ADMIN DATE: 2025
     Route: 058
     Dates: start: 20250401
  3. FOSCARBIDOPA\FOSLEVODOPA [Suspect]
     Active Substance: FOSCARBIDOPA\FOSLEVODOPA
     Dosage: CR: 0.20 ML/H, CRN: 0.15 ML/H, CRH: 0.22 ML/H, ED: 0.15 ML?FIRST ADMIN DATE- 2025?LAST ADMIN DATE...
     Route: 058
  4. FOSCARBIDOPA\FOSLEVODOPA [Suspect]
     Active Substance: FOSCARBIDOPA\FOSLEVODOPA
     Dosage: CRN: 0.15 ML/H; CR: 0.20 ML/H; CRH: 0.22 ML/H; ED: 0.15 ML?FIRST ADMIN DATE- 2025?LAST ADMIN DATE...
     Route: 058
  5. FOSCARBIDOPA\FOSLEVODOPA [Suspect]
     Active Substance: FOSCARBIDOPA\FOSLEVODOPA
     Dosage: SD: 0.40 ML, CRN: 0.15 ML/H, CR: 0.22 ML/H, CRH: 0.22 ML/H, ED: 0.15 ML?FIRST ADMIN DATE- 2025?LA...
     Route: 058
  6. FOSCARBIDOPA\FOSLEVODOPA [Suspect]
     Active Substance: FOSCARBIDOPA\FOSLEVODOPA
     Dosage: CRN: 0.15 ML/H; CR: 0.20 ML/H; CRH: 0.22 ML/H; ED: 0.15 ML?FIRST ADMIN DATE- 2025?LAST ADMIN DATE...
     Route: 058
  7. FOSCARBIDOPA\FOSLEVODOPA [Suspect]
     Active Substance: FOSCARBIDOPA\FOSLEVODOPA
     Dosage: SD: 0.40 ML, CRN: 0.15 ML/H, CR: 0.30 ML/H, CRH: UNKNOWN, ED: 0.15 ML FIRST ADMIN DATE: 2025.
     Route: 058
     Dates: end: 20251016
  8. BENSERAZIDE HYDROCHLORIDE\LEVODOPA [Suspect]
     Active Substance: BENSERAZIDE HYDROCHLORIDE\LEVODOPA
     Indication: Product used for unknown indication
     Dosage: MADOPAR 100/25 AT 11 O^CLOCK AND 14 O^CLOCK
     Route: 048

REACTIONS (32)
  - General physical health deterioration [Not Recovered/Not Resolved]
  - Restlessness [Recovering/Resolving]
  - Immobile [Recovering/Resolving]
  - Infusion site erythema [Not Recovered/Not Resolved]
  - Dysstasia [Unknown]
  - Infusion site abscess [Not Recovered/Not Resolved]
  - On and off phenomenon [Not Recovered/Not Resolved]
  - Bradykinesia [Unknown]
  - Feeling abnormal [Unknown]
  - Infusion site warmth [Not Recovered/Not Resolved]
  - Freezing phenomenon [Not Recovered/Not Resolved]
  - Gait inability [Unknown]
  - Speech disorder [Recovering/Resolving]
  - Hypokinesia [Not Recovered/Not Resolved]
  - Obesity [Not Recovered/Not Resolved]
  - Movement disorder [Recovering/Resolving]
  - Fatigue [Not Recovered/Not Resolved]
  - Toe walking [Unknown]
  - Fall [Not Recovered/Not Resolved]
  - Hyperkinesia [Not Recovered/Not Resolved]
  - Mobility decreased [Recovering/Resolving]
  - Hallucination [Not Recovered/Not Resolved]
  - Dysarthria [Recovering/Resolving]
  - Infusion site induration [Recovering/Resolving]
  - Facial paralysis [Unknown]
  - Hyporesponsive to stimuli [Not Recovered/Not Resolved]
  - Malaise [Not Recovered/Not Resolved]
  - Drug ineffective [Not Recovered/Not Resolved]
  - Incorrect product administration duration [Unknown]
  - Infusion site abscess [Recovering/Resolving]
  - Infusion site reaction [Recovered/Resolved]
  - Drug ineffective [Unknown]

NARRATIVE: CASE EVENT DATE: 20250101
